FAERS Safety Report 7176670-4 (Version None)
Quarter: 2010Q4

REPORT INFORMATION
  Report Type: 
  Country: None (occurrence: None)
  Receive Date: 20101215
  Receipt Date: 20101215
  Transmission Date: 20110411
  Serious: Yes (Other)
  Sender: FDA-Public Use
  Company Number: None

PATIENT
  Age: 9 Month
  Sex: Male
  Weight: 7.81 kg

DRUGS (4)
  1. SYNAGIS [Suspect]
     Dosage: 100MG ONCE MONTHLY PO 2 DOSES, 1 MONTH APART
     Route: 048
     Dates: start: 20101101
  2. SYNAGIS [Suspect]
     Dosage: 100MG ONCE MONTHLY PO 2 DOSES, 1 MONTH APART
     Route: 048
     Dates: start: 20101201
  3. SYNAGIS [Suspect]
     Dosage: 17MG ONCE MONTHLY PO 2 DOSES, 1 MONTH APART
     Route: 048
     Dates: start: 20101101
  4. SYNAGIS [Suspect]
     Dosage: 17MG ONCE MONTHLY PO 2 DOSES, 1 MONTH APART
     Route: 048
     Dates: start: 20101201

REACTIONS (2)
  - PYREXIA [None]
  - RASH GENERALISED [None]
